FAERS Safety Report 17147108 (Version 1)
Quarter: 2019Q4

REPORT INFORMATION
  Report Type: Spontaneous
  Country: NL (occurrence: NL)
  Receive Date: 20191212
  Receipt Date: 20191212
  Transmission Date: 20200122
  Serious: Yes (Other)
  Sender: FDA-Public Use
  Company Number: NL-MYLANLABS-2019M1122318

PATIENT
  Age: 52 Year
  Sex: Female
  Weight: 56 kg

DRUGS (2)
  1. EZETIMIBE. [Suspect]
     Active Substance: EZETIMIBE
     Indication: PRODUCT USED FOR UNKNOWN INDICATION
     Dosage: 10 MG, DAILY
     Route: 065
     Dates: start: 200405, end: 200503
  2. ATORVASTATIN [Suspect]
     Active Substance: ATORVASTATIN
     Indication: HYPERCHOLESTEROLAEMIA
     Dosage: 40 MG, DAILY
     Route: 065
     Dates: start: 2003, end: 200503

REACTIONS (1)
  - Hepatitis cholestatic [Not Recovered/Not Resolved]

NARRATIVE: CASE EVENT DATE: 200507
